FAERS Safety Report 5214993-6 (Version None)
Quarter: 2007Q1

REPORT INFORMATION
  Report Type: 
  Country: None (occurrence: None)
  Receive Date: 20070119
  Receipt Date: 20070119
  Transmission Date: 20070707
  Serious: Yes (Hospitalization, Other)
  Sender: FDA-Public Use
  Company Number: None

PATIENT
  Age: 56 Year
  Sex: Female
  Weight: 67.1324 kg

DRUGS (22)
  1. IODIXANOL  320 MGI/ML  AMERSHAM HEALTH [Suspect]
     Indication: COMPUTERISED TOMOGRAM
     Dosage: 150 ML ONCE IV
     Route: 042
     Dates: start: 20060813, end: 20060813
  2. DIATRIZOATE MEGLUMINE [Suspect]
     Indication: COMPUTERISED TOMOGRAM
     Dosage: 40ML ONCE PO
     Route: 048
     Dates: start: 20060724
  3. DIATRIZOATE MEGLUMINE [Suspect]
     Indication: COMPUTERISED TOMOGRAM
     Dosage: 40ML ONCE PO
     Route: 048
     Dates: start: 20060804
  4. DIATRIZOATE MEGLUMINE [Suspect]
     Indication: COMPUTERISED TOMOGRAM
     Dosage: 40ML ONCE PO
     Route: 048
     Dates: start: 20060813
  5. NEXIUM [Concomitant]
  6. LEVOTHYROXINE SODIUM [Concomitant]
  7. DOCUSATE [Concomitant]
  8. ALBUTEROL [Concomitant]
  9. METHYLPREDNISOLONE 16MG TAB [Concomitant]
  10. HEPARIN [Concomitant]
  11. METOCLOPRAMIDE [Concomitant]
  12. DOPAMINE HCL [Concomitant]
  13. INHALED AMPHOTERICIN B [Concomitant]
  14. INHALED TOBRAMYCIN [Concomitant]
  15. EPOETIN ALFA [Concomitant]
  16. MYCOPHENOLATE MOFETIL [Concomitant]
  17. GANCICLOVIR [Concomitant]
  18. METRONIDAZOLE [Concomitant]
  19. IMIPENEM/CILASTATIN [Concomitant]
  20. BACTRIM [Concomitant]
  21. CYCLOSPORINE [Concomitant]
  22. FUROSEMIDE [Concomitant]

REACTIONS (3)
  - BLOOD PRESSURE SYSTOLIC ABNORMAL [None]
  - NEPHROPATHY [None]
  - RENAL FAILURE ACUTE [None]
